FAERS Safety Report 23064162 (Version 2)
Quarter: 2025Q1

REPORT INFORMATION
  Report Type: Spontaneous
  Country: JP (occurrence: JP)
  Receive Date: 20231013
  Receipt Date: 20250312
  Transmission Date: 20250408
  Serious: Yes (Other)
  Sender: EISAI
  Company Number: JP-Eisai-202307752_LEN-EC_P_1

PATIENT
  Age: 37 Year
  Sex: Female

DRUGS (10)
  1. LENVIMA [Suspect]
     Active Substance: LENVATINIB
     Indication: Endometrial cancer recurrent
  2. LENVIMA [Suspect]
     Active Substance: LENVATINIB
  3. LENVIMA [Suspect]
     Active Substance: LENVATINIB
  4. LENVIMA [Suspect]
     Active Substance: LENVATINIB
  5. LENVIMA [Suspect]
     Active Substance: LENVATINIB
     Dosage: ON A 5-DAY-ON AND 2-DAY-OFF SCHEDULE
  6. KEYTRUDA [Suspect]
     Active Substance: PEMBROLIZUMAB
     Indication: Endometrial cancer recurrent
  7. KEYTRUDA [Suspect]
     Active Substance: PEMBROLIZUMAB
  8. KEYTRUDA [Suspect]
     Active Substance: PEMBROLIZUMAB
  9. LEVOTHYROXINE SODIUM [Concomitant]
     Active Substance: LEVOTHYROXINE SODIUM
     Indication: Hypothyroidism
  10. LEVOTHYROXINE SODIUM [Concomitant]
     Active Substance: LEVOTHYROXINE SODIUM

REACTIONS (6)
  - Malaise [Unknown]
  - Febrile neutropenia [Unknown]
  - Hypothyroidism [Unknown]
  - Arthralgia [Unknown]
  - Herpes simplex [Unknown]
  - Hypertension [Unknown]
